FAERS Safety Report 7345427-3 (Version None)
Quarter: 2011Q1

REPORT INFORMATION
  Report Type: 
  Country: None (occurrence: None)
  Receive Date: 20110310
  Receipt Date: 20110302
  Transmission Date: 20110831
  Serious: Yes (Hospitalization)
  Sender: FDA-Public Use
  Company Number: US-MPIJNJ-2011-00719

PATIENT
  Sex: Female
  Weight: 58.957 kg

DRUGS (8)
  1. VELCADE [Suspect]
     Dosage: UNK
     Dates: start: 20110112, end: 20110215
  2. SYNTHROID [Concomitant]
     Indication: PRODUCT USED FOR UNKNOWN INDICATION
     Dosage: 100 UG, UNK
     Route: 048
  3. ZOCOR [Concomitant]
     Indication: PRODUCT USED FOR UNKNOWN INDICATION
     Dosage: 40 MG, UNK
     Route: 048
  4. BENDAMUSTINE [Suspect]
     Dosage: UNK
     Dates: start: 20110112, end: 20110215
  5. XANAX [Concomitant]
     Indication: PRODUCT USED FOR UNKNOWN INDICATION
     Dosage: 0.5 MG, UNK
     Route: 048
  6. PERCOCET-5 [Concomitant]
     Indication: PRODUCT USED FOR UNKNOWN INDICATION
     Dosage: UNK
     Route: 048
  7. ASPIRIN [Concomitant]
     Indication: PRODUCT USED FOR UNKNOWN INDICATION
     Dosage: 81 MG, UNK
     Route: 048
  8. RITUXIMAB [Suspect]
     Dosage: UNK
     Dates: start: 20110112, end: 20110215

REACTIONS (2)
  - PERIDIVERTICULAR ABSCESS [None]
  - DYSPNOEA [None]
